FAERS Safety Report 23160329 (Version 2)
Quarter: 2023Q4

REPORT INFORMATION
  Report Type: Spontaneous
  Country: GB (occurrence: GB)
  Receive Date: 20231108
  Receipt Date: 20231121
  Transmission Date: 20240110
  Serious: Yes (Hospitalization, Other)
  Sender: FDA-Public Use
  Company Number: None

PATIENT
  Sex: Female

DRUGS (6)
  1. LAMOTRIGINE [Suspect]
     Active Substance: LAMOTRIGINE
     Indication: Product used for unknown indication
     Dosage: 25 MILLIGRAM, BID
     Route: 065
     Dates: start: 20190525
  2. LAMOTRIGINE [Suspect]
     Active Substance: LAMOTRIGINE
     Dosage: 100 MILLIGRAM, BID
     Route: 065
     Dates: start: 20190617
  3. LAMOTRIGINE [Suspect]
     Active Substance: LAMOTRIGINE
     Dosage: 125 MILLIGRAM, BID
     Route: 065
     Dates: start: 20190622
  4. LAMOTRIGINE [Suspect]
     Active Substance: LAMOTRIGINE
     Dosage: 150 MILLIGRAM, BID
     Route: 065
     Dates: start: 20190710
  5. LAMOTRIGINE [Suspect]
     Active Substance: LAMOTRIGINE
     Dosage: 175 MILLIGRAM, BID
     Route: 065
     Dates: start: 20191005, end: 20200120
  6. EPILIM [Suspect]
     Active Substance: VALPROATE SODIUM
     Indication: Product used for unknown indication
     Dosage: 600 MILLIGRAM, BID
     Route: 065
     Dates: start: 2000

REACTIONS (12)
  - Cognitive disorder [Unknown]
  - Aphasia [Unknown]
  - Asthenia [Unknown]
  - Cerebral atrophy [Unknown]
  - Subgaleal haematoma [Unknown]
  - Dyspnoea [Unknown]
  - Anxiety [Unknown]
  - Cerebral hypoperfusion [Unknown]
  - Dementia Alzheimer^s type [Unknown]
  - Seizure [Unknown]
  - Loss of consciousness [Unknown]
  - Tremor [Unknown]

NARRATIVE: CASE EVENT DATE: 20180801
